FAERS Safety Report 11362624 (Version 1)
Quarter: 2015Q3

REPORT INFORMATION
  Report Type: Spontaneous
  Country: DE (occurrence: JP)
  Receive Date: 20150810
  Receipt Date: 20150810
  Transmission Date: 20151125
  Serious: Yes (Other)
  Sender: FDA-Public Use
  Company Number: JP-MERZ NORTH AMERICA, INC.-15MRZ-00204

PATIENT
  Sex: Female

DRUGS (1)
  1. ASCLERA [Suspect]
     Active Substance: POLIDOCANOL
     Indication: VARICOSE VEIN
     Dosage: 2 AMPOULES
     Route: 042

REACTIONS (6)
  - Anaphylactoid shock [None]
  - Oropharyngeal discomfort [None]
  - Blood pressure decreased [None]
  - Headache [None]
  - Abnormal sensation in eye [None]
  - Flushing [None]
